FAERS Safety Report 21545099 (Version 2)
Quarter: 2022Q4

REPORT INFORMATION
  Report Type: Report from Study
  Country: JP (occurrence: JP)
  Receive Date: 20221103
  Receipt Date: 20221109
  Transmission Date: 20230113
  Serious: Yes (Hospitalization)
  Sender: FDA-Public Use
  Company Number: JP-ONO-2022JP029611

PATIENT
  Age: 70 Year
  Sex: Male
  Weight: 55 kg

DRUGS (12)
  1. NIVOLUMAB [Suspect]
     Active Substance: NIVOLUMAB
     Indication: Colon cancer
     Route: 041
     Dates: start: 20221018
  2. MAGROLIMAB [Suspect]
     Active Substance: MAGROLIMAB
     Indication: Colon cancer
     Route: 041
     Dates: start: 20221018, end: 20221018
  3. MAGROLIMAB [Suspect]
     Active Substance: MAGROLIMAB
     Route: 041
     Dates: start: 20221025, end: 20221101
  4. CETUXIMAB [Suspect]
     Active Substance: CETUXIMAB
     Indication: Colon cancer
     Dosage: UNK ML
     Route: 041
     Dates: start: 20221018, end: 20221101
  5. FLUOROURACIL [Suspect]
     Active Substance: FLUOROURACIL
     Indication: Colon cancer
     Route: 041
     Dates: start: 20221018, end: 20221101
  6. LEVOLEUCOVORIN [Suspect]
     Active Substance: LEVOLEUCOVORIN
     Indication: Colon cancer
     Route: 041
     Dates: start: 20221018, end: 20221101
  7. OXALIPLATIN [Suspect]
     Active Substance: OXALIPLATIN
     Indication: Colon cancer
     Dosage: UNK ML
     Route: 041
     Dates: start: 20221018, end: 20221101
  8. METOCLOPRAMIDE [Concomitant]
     Active Substance: METOCLOPRAMIDE
     Indication: Nausea
     Dosage: 5 MG, PRN
     Route: 048
     Dates: start: 20221020
  9. GENTAMICIN SULFATE [Concomitant]
     Active Substance: GENTAMICIN SULFATE
     Indication: Rash
     Dosage: EVERYDAY, ADEQUATE DOSE
     Route: 061
     Dates: start: 20221027
  10. BETAMETHASONE [Concomitant]
     Active Substance: BETAMETHASONE
     Indication: Rash
     Dosage: Q8H, ADEQUATE DOSE
     Route: 061
     Dates: start: 20221027
  11. RINDERON VG [Concomitant]
     Active Substance: BETAMETHASONE VALERATE\GENTAMICIN SULFATE
     Indication: Stoma complication
     Dosage: Q8H, ADEQUATE DOSE
     Route: 061
     Dates: start: 20221025
  12. LOXOPROFEN SODIUM [Concomitant]
     Active Substance: LOXOPROFEN SODIUM
     Indication: Pyrexia
     Dosage: 60 MG, PRN
     Route: 048
     Dates: start: 20221028

REACTIONS (1)
  - Liver disorder [Recovering/Resolving]

NARRATIVE: CASE EVENT DATE: 20221029
